FAERS Safety Report 9306260 (Version 1)
Quarter: 2013Q2

REPORT INFORMATION
  Report Type: Spontaneous
  Country: BR (occurrence: BR)
  Receive Date: 20130523
  Receipt Date: 20130523
  Transmission Date: 20140414
  Serious: Yes (Other)
  Sender: FDA-Public Use
  Company Number: BR-PFIZER INC-2013155524

PATIENT
  Age: 66 Year
  Sex: Male

DRUGS (1)
  1. FRONTAL [Suspect]
     Indication: INSOMNIA
     Dosage: ONE TABLET OF 0.5MG ONCE DAILY AND ONE TABLET OF 0.25MG TWICE DAILY
     Route: 048
     Dates: start: 20090520

REACTIONS (2)
  - Blood glucose increased [Not Recovered/Not Resolved]
  - Cataract [Not Recovered/Not Resolved]
